FAERS Safety Report 8535862-X (Version None)
Quarter: 2012Q3

REPORT INFORMATION
  Report Type: 
  Country: None (occurrence: None)
  Receive Date: 20120718
  Receipt Date: 20120718
  Transmission Date: 20120928
  Serious: Yes (Death)
  Sender: FDA-Public Use
  Company Number: None

PATIENT
  Sex: Male
  Weight: 68.0396 kg

DRUGS (2)
  1. ZOLOFT [Suspect]
  2. ZOLOFT / SERTRALINE 150MG PFIZER DAIL\Y [Suspect]
     Indication: DEPRESSION
     Dosage: 150MG DAILY
     Dates: start: 20120101

REACTIONS (1)
  - DEATH [None]
